FAERS Safety Report 18024688 (Version 1)
Quarter: 2020Q3

REPORT INFORMATION
  Report Type: Spontaneous
  Country: US (occurrence: US)
  Receive Date: 20200715
  Receipt Date: 20200715
  Transmission Date: 20201103
  Serious: Yes (Other)
  Sender: FDA-Public Use
  Company Number: None

PATIENT
  Age: 58 Year
  Sex: Female
  Weight: 114.75 kg

DRUGS (4)
  1. VITAMIN D [Concomitant]
     Active Substance: VITAMIN D NOS
  2. VITAMIN C [Concomitant]
     Active Substance: ASCORBIC ACID
  3. ART NATURALS UNSCENTED [Suspect]
     Active Substance: ALCOHOL
     Indication: INFECTION PROPHYLAXIS
     Dates: start: 20200613, end: 20200613
  4. VITAMIN K [Concomitant]
     Active Substance: PHYTONADIONE

REACTIONS (8)
  - Dizziness [None]
  - Product use issue [None]
  - Nausea [None]
  - Parosmia [None]
  - Poisoning [None]
  - Product formulation issue [None]
  - Pseudoneurologic symptom [None]
  - Malaise [None]

NARRATIVE: CASE EVENT DATE: 20200614
